FAERS Safety Report 5282863-3 (Version None)
Quarter: 2007Q1

REPORT INFORMATION
  Report Type: 
  Country: None (occurrence: None)
  Receive Date: 20070314
  Receipt Date: 20070302
  Transmission Date: 20070707
  Serious: Yes (Hospitalization)
  Sender: FDA-Public Use
  Company Number: THYM-11259

PATIENT
  Age: 46 Year
  Sex: Female

DRUGS (13)
  1. THYMOGLOBULIN [Suspect]
     Indication: PANCREAS TRANSPLANT
     Dosage: 75 MG QD IV
     Route: 042
     Dates: start: 20041007, end: 20041007
  2. THYMOGLOBULIN [Suspect]
     Indication: RENAL TRANSPLANT
     Dosage: 75 MG QD IV
     Route: 042
     Dates: start: 20041007, end: 20041007
  3. THYMOGLOBULIN [Suspect]
     Indication: PANCREAS TRANSPLANT
     Dates: start: 20041008, end: 20041014
  4. THYMOGLOBULIN [Suspect]
     Indication: RENAL TRANSPLANT
     Dates: start: 20041008, end: 20041014
  5. SIROLIMUS [Suspect]
     Indication: IMMUNOSUPPRESSION
  6. TACROLIMUS [Suspect]
     Indication: IMMUNOSUPPRESSION
  7. BACTRIM [Concomitant]
  8. VALACYCLOVIR HCL [Concomitant]
  9. HEPARIN [Concomitant]
  10. ASPIRIN [Concomitant]
  11. CELLCEPT [Concomitant]
  12. SOLU-MEDROL [Concomitant]
  13. STEROIDS (PREDNISONE OR PREDNISOLONE) [Concomitant]

REACTIONS (1)
  - PERITONEAL EFFUSION [None]
